FAERS Safety Report 20873330 (Version 1)
Quarter: 2022Q2

REPORT INFORMATION
  Report Type: Spontaneous
  Country: US (occurrence: US)
  Receive Date: 20220525
  Receipt Date: 20220525
  Transmission Date: 20220721
  Serious: Yes (Other)
  Sender: FDA-Public Use
  Company Number: US-PFIZER INC-202200748835

PATIENT
  Age: 20 Year
  Sex: Male
  Weight: 83.01 kg

DRUGS (1)
  1. VIAGRA [Suspect]
     Active Substance: SILDENAFIL CITRATE
     Indication: Erectile dysfunction
     Dosage: 1200 MG

REACTIONS (3)
  - Intentional overdose [Unknown]
  - Erection increased [Unknown]
  - Penile pain [Unknown]

NARRATIVE: CASE EVENT DATE: 20190601
